FAERS Safety Report 14009200 (Version 2)
Quarter: 2018Q4

REPORT INFORMATION
  Report Type: Report from Study
  Country: US (occurrence: US)
  Receive Date: 20170925
  Receipt Date: 20181012
  Transmission Date: 20190204
  Serious: Yes (Death, Life-Threatening, Hospitalization)
  Sender: FDA-Public Use
  Company Number: US-ASTRAZENECA-2017SE96118

PATIENT
  Age: 30788 Day
  Sex: Male
  Weight: 74.3 kg

DRUGS (1)
  1. MEDI4736 [Suspect]
     Active Substance: DURVALUMAB
     Indication: SQUAMOUS CELL CARCINOMA OF LUNG
     Dosage: 743 MG
     Route: 042
     Dates: start: 20170829

REACTIONS (4)
  - Sepsis [Unknown]
  - Respiratory failure [Unknown]
  - Small intestinal obstruction [Fatal]
  - Acute kidney injury [Unknown]

NARRATIVE: CASE EVENT DATE: 20170916
